FAERS Safety Report 9166426 (Version 1)
Quarter: 2013Q1

REPORT INFORMATION
  Report Type: Spontaneous
  Country: US (occurrence: US)
  Receive Date: 20130315
  Receipt Date: 20130315
  Transmission Date: 20140127
  Serious: Yes (Other)
  Sender: FDA-Public Use
  Company Number: US-ASTRAZENECA-2013SE15946

PATIENT
  Age: 60 Year
  Sex: Female
  Weight: 81.6 kg

DRUGS (13)
  1. NEXIUM [Suspect]
     Indication: GASTRIC ULCER
     Route: 048
     Dates: start: 2008
  2. METOPROLOL [Suspect]
     Indication: HYPERTENSION
     Route: 048
  3. HUMULIN [Concomitant]
     Indication: DIABETES MELLITUS
  4. PROVASTATIN [Concomitant]
     Indication: BLOOD CHOLESTEROL ABNORMAL
  5. HYDROXYZINE [Concomitant]
     Indication: PRURITUS
  6. LEVOTHYROXINE [Concomitant]
     Indication: THYROID DISORDER
  7. GABAPENTIN [Concomitant]
     Indication: LIMB INJURY
  8. GABAPENTIN [Concomitant]
     Indication: LIMB INJURY
  9. ENALAPRIL [Concomitant]
     Indication: BLOOD PRESSURE ABNORMAL
  10. RENABITE [Concomitant]
     Indication: VITAMIN SUPPLEMENTATION
     Dosage: DAILY
  11. AMLODIPINE [Concomitant]
     Indication: BLOOD PRESSURE ABNORMAL
  12. VITAL [Concomitant]
     Indication: VITAMIN SUPPLEMENTATION
     Dosage: DAILY
  13. RENBEL [Concomitant]

REACTIONS (2)
  - Renal disorder [Unknown]
  - Intentional drug misuse [Unknown]
